FAERS Safety Report 7177754-7 (Version None)
Quarter: 2010Q4

REPORT INFORMATION
  Report Type: 
  Country: None (occurrence: None)
  Receive Date: 20101220
  Receipt Date: 20101213
  Transmission Date: 20110411
  Serious: Yes (Other)
  Sender: FDA-Public Use
  Company Number: GXKR2010AT11916

PATIENT
  Sex: Male

DRUGS (3)
  1. CLARITHROMYCIN [Suspect]
     Dosage: 250 MG, BID
     Route: 048
     Dates: start: 20101011
  2. VENLAFAXINE [Concomitant]
     Dosage: UNK
     Route: 065
  3. TRAZODONE HCL [Concomitant]
     Dosage: UNK
     Route: 065

REACTIONS (10)
  - ALANINE AMINOTRANSFERASE INCREASED [None]
  - ASPARTATE AMINOTRANSFERASE INCREASED [None]
  - GAMMA-GLUTAMYLTRANSFERASE INCREASED [None]
  - LISTLESS [None]
  - MALAISE [None]
  - OEDEMA PERIPHERAL [None]
  - PARAESTHESIA [None]
  - PRURITUS [None]
  - STRESS AT WORK [None]
  - TRANSAMINASES INCREASED [None]
